FAERS Safety Report 16123205 (Version 2)
Quarter: 2019Q2

REPORT INFORMATION
  Report Type: Spontaneous
  Country: JP (occurrence: JP)
  Receive Date: 20190327
  Receipt Date: 20190416
  Transmission Date: 20190711
  Serious: Yes (Hospitalization, Other)
  Sender: FDA-Public Use
  Company Number: JP-SAKK-2019SA076258AA

PATIENT
  Age: 65 Year
  Sex: Female

DRUGS (4)
  1. TRASTUZUMAB. [Suspect]
     Active Substance: TRASTUZUMAB
     Indication: BREAST CANCER
     Route: 065
  2. DOCETAXEL. [Suspect]
     Active Substance: DOCETAXEL
     Indication: BREAST CANCER
     Route: 041
  3. PERTUZUMAB. [Suspect]
     Active Substance: PERTUZUMAB
     Indication: BREAST CANCER
     Route: 065
  4. PEGFILGRASTIM [Concomitant]
     Active Substance: PEGFILGRASTIM
     Indication: PROPHYLAXIS
     Dosage: DAY 2
     Route: 065

REACTIONS (3)
  - Infective aortitis [Recovering/Resolving]
  - Pyrexia [Recovering/Resolving]
  - Bacteraemia [Unknown]
